FAERS Safety Report 5179442-5 (Version None)
Quarter: 2006Q4

REPORT INFORMATION
  Report Type: 
  Country: None (occurrence: None)
  Receive Date: 20061211
  Receipt Date: 20061201
  Transmission Date: 20070319
  Serious: Yes (Death)
  Sender: FDA-Public Use
  Company Number: MC200600858

PATIENT
  Sex: Female

DRUGS (1)
  1. ANGIOMAX [Suspect]
     Indication: PERCUTANEOUS CORONARY INTERVENTION
     Dosage: UNK, UNK, UNKNOWN

REACTIONS (3)
  - CORONARY ARTERY PERFORATION [None]
  - IATROGENIC INJURY [None]
  - PROCEDURAL COMPLICATION [None]
